FAERS Safety Report 4592595-2 (Version None)
Quarter: 2005Q1

REPORT INFORMATION
  Report Type: 
  Country: None (occurrence: None)
  Receive Date: 20050228
  Receipt Date: 20030226
  Transmission Date: 20050727
  Serious: Yes (Disabling, Other)
  Sender: FDA-Public Use
  Company Number: US-BRISTOL-MYERS SQUIBB COMPANY-12197463

PATIENT
  Age: 23 Year
  Sex: Male
  Weight: 54 kg

DRUGS (14)
  1. ZERIT [Suspect]
     Indication: ACQUIRED IMMUNODEFICIENCY SYNDROME
     Route: 048
     Dates: start: 19980114
  2. VIDEX [Suspect]
     Indication: ACQUIRED IMMUNODEFICIENCY SYNDROME
     Dosage: 150 MG BID 10/30/95, 100 MG BID 12/25/95, 150 MG BID 3/11/98, 200 MG BID 7/12/99-4/20/01
     Route: 048
     Dates: start: 19951030
  3. VIDEX [Suspect]
     Indication: HIV INFECTION
     Dosage: 150 MG BID 10/30/95, 100 MG BID 12/25/95, 150 MG BID 3/11/98, 200 MG BID 7/12/99-4/20/01
     Route: 048
     Dates: start: 19951030
  4. VIDEX EC [Suspect]
     Dates: start: 20010421
  5. STOCRIN CAPS [Suspect]
     Indication: ACQUIRED IMMUNODEFICIENCY SYNDROME
     Route: 048
     Dates: start: 19990329, end: 20020303
  6. VIRACEPT [Suspect]
     Indication: ACQUIRED IMMUNODEFICIENCY SYNDROME
     Dosage: INITIATED AT 500 MG THREE TIMES DAILY TO 11-NOV-1997, RESTARTED 17-AUG-1999
     Route: 048
     Dates: start: 19970804, end: 20020303
  7. ZIAGEN [Suspect]
     Indication: ACQUIRED IMMUNODEFICIENCY SYNDROME
     Route: 048
     Dates: start: 19990329
  8. KALETRA [Suspect]
     Indication: ACQUIRED IMMUNODEFICIENCY SYNDROME
     Dosage: DOSAGE FORM=DOSE
     Route: 048
     Dates: start: 20020304
  9. SOMATROPIN [Suspect]
     Indication: WEIGHT DECREASED
     Route: 042
     Dates: start: 20010423
  10. LOPEMIN [Concomitant]
     Dosage: THERAPY INTERRUPTED 10/31/99, RESTARTED 4/1/01
     Route: 048
     Dates: start: 19981101
  11. RECOMBINATE [Concomitant]
     Dosage: DOSAGE FORM = UNITS
     Route: 042
     Dates: start: 19991101
  12. AMPRENAVIR [Concomitant]
     Dates: start: 19990510, end: 19990817
  13. INVIRASE [Concomitant]
     Dates: start: 19971111, end: 19980311
  14. NORVIR [Concomitant]
     Dates: start: 19971111, end: 19980311

REACTIONS (5)
  - ASEPTIC NECROSIS BONE [None]
  - CACHEXIA [None]
  - HIV WASTING SYNDROME [None]
  - HYPERLACTACIDAEMIA [None]
  - JOINT DISLOCATION [None]
